FAERS Safety Report 9759569 (Version 2)
Quarter: 2015Q3

REPORT INFORMATION
  Report Type: Spontaneous
  Country: US (occurrence: US)
  Receive Date: 20131216
  Receipt Date: 20150806
  Transmission Date: 20151125
  Serious: No
  Sender: FDA-Public Use
  Company Number: US-GILEAD-2010-0028203

PATIENT
  Age: 78 Year
  Sex: Female
  Weight: 59.42 kg

DRUGS (12)
  1. TYLENOL [Concomitant]
     Active Substance: ACETAMINOPHEN
  2. CENTRUM [Concomitant]
     Active Substance: VITAMINS
  3. ADCIRCA [Concomitant]
     Active Substance: TADALAFIL
  4. ZOCOR [Concomitant]
     Active Substance: SIMVASTATIN
  5. LASIX [Concomitant]
     Active Substance: FUROSEMIDE
  6. DIOVAN [Concomitant]
     Active Substance: VALSARTAN
  7. LETAIRIS [Suspect]
     Active Substance: AMBRISENTAN
     Indication: PULMONARY ARTERIAL HYPERTENSION
     Route: 048
     Dates: start: 20090408
  8. LOPRESSOR [Concomitant]
     Active Substance: METOPROLOL TARTRATE
  9. LANTUS [Concomitant]
     Active Substance: INSULIN GLARGINE
  10. IRON [Concomitant]
     Active Substance: IRON
  11. COUMADIN [Concomitant]
     Active Substance: WARFARIN SODIUM
  12. OMEPRAZOLE. [Concomitant]
     Active Substance: OMEPRAZOLE

REACTIONS (1)
  - Hypotension [Unknown]
